FAERS Safety Report 5837982-7 (Version None)
Quarter: 2008Q3

REPORT INFORMATION
  Report Type: 
  Country: None (occurrence: None)
  Receive Date: 20080808
  Receipt Date: 20080114
  Transmission Date: 20090109
  Serious: No
  Sender: FDA-Public Use
  Company Number: A0703906A

PATIENT
  Sex: Female

DRUGS (1)
  1. PAXIL [Suspect]
     Indication: DRUG USE FOR UNKNOWN INDICATION
     Dosage: .5MG SINGLE DOSE
     Route: 065

REACTIONS (1)
  - BURNING SENSATION [None]
